FAERS Safety Report 21322079 (Version 1)
Quarter: 2022Q3

REPORT INFORMATION
  Report Type: Spontaneous
  Country: US (occurrence: None)
  Receive Date: 20220910
  Receipt Date: 20220910
  Transmission Date: 20221027
  Serious: Yes (Other)
  Sender: FDA-Public Use
  Company Number: None

PATIENT
  Age: 42 Year
  Sex: Female
  Weight: 119.25 kg

DRUGS (10)
  1. PAXLOVID [Suspect]
     Active Substance: NIRMATRELVIR\RITONAVIR
     Indication: COVID-19
     Dosage: OTHER QUANTITY : 3 TABLET(S);?FREQUENCY : TWICE A DAY;?
     Route: 048
  2. SYNTHROID [Concomitant]
     Active Substance: LEVOTHYROXINE SODIUM
  3. ZOLOFT [Concomitant]
     Active Substance: SERTRALINE HYDROCHLORIDE
  4. XANAX [Concomitant]
     Active Substance: ALPRAZOLAM
  5. KLONOPIN [Concomitant]
     Active Substance: CLONAZEPAM
  6. VICTOZA [Concomitant]
     Active Substance: LIRAGLUTIDE
  7. COSENTYX [Concomitant]
     Active Substance: SECUKINUMAB
  8. low dose naltrexone [Concomitant]
  9. VITAMIN D [Concomitant]
     Active Substance: VITAMIN D NOS
  10. GINGER [Concomitant]
     Active Substance: GINGER

REACTIONS (3)
  - Dry mouth [None]
  - Chromaturia [None]
  - Dehydration [None]

NARRATIVE: CASE EVENT DATE: 20220907
